FAERS Safety Report 15792914 (Version 2)
Quarter: 2019Q1

REPORT INFORMATION
  Report Type: Report from Study
  Country: DK (occurrence: DK)
  Receive Date: 20190107
  Receipt Date: 20190121
  Transmission Date: 20190417
  Serious: Yes (Death, Hospitalization, Other)
  Sender: FDA-Public Use
  Company Number: DK-AUROBINDO-AUR-APL-2019-000110

PATIENT
  Age: 61 Year
  Sex: Female

DRUGS (4)
  1. RAMIPRIL. [Suspect]
     Active Substance: RAMIPRIL
     Indication: PRODUCT USED FOR UNKNOWN INDICATION
     Dosage: 150 MILLIGRAM IN TOTAL
     Route: 065
  2. IBUPROFEN. [Suspect]
     Active Substance: IBUPROFEN
     Indication: PRODUCT USED FOR UNKNOWN INDICATION
     Dosage: 20 GRAM IN TOTAL
     Route: 065
  3. VERAPAMIL [Suspect]
     Active Substance: VERAPAMIL HYDROCHLORIDE
     Indication: PRODUCT USED FOR UNKNOWN INDICATION
     Dosage: 6000 MILLIGRAM IN TOTAL
     Route: 048
  4. ZOLPIDEM [Suspect]
     Active Substance: ZOLPIDEM\ZOLPIDEM TARTRATE
     Indication: PRODUCT USED FOR UNKNOWN INDICATION
     Dosage: 200 GRAM IN TOTAL
     Route: 065

REACTIONS (11)
  - Overdose [Fatal]
  - Speech disorder [Unknown]
  - Pallor [Unknown]
  - Cardiotoxicity [Fatal]
  - Electrocardiogram QRS complex prolonged [Fatal]
  - Anuria [Unknown]
  - Suicide attempt [Fatal]
  - Toxicity to various agents [Fatal]
  - Loss of consciousness [Unknown]
  - Nasopharyngitis [Unknown]
  - Hyperhidrosis [Unknown]
